FAERS Safety Report 5754761-X (Version None)
Quarter: 2008Q2

REPORT INFORMATION
  Report Type: 
  Country: None (occurrence: None)
  Receive Date: 20080527
  Receipt Date: 20080507
  Transmission Date: 20081010
  Serious: Yes (Hospitalization)
  Sender: FDA-Public Use
  Company Number: 2008PV035284

PATIENT
  Sex: Female

DRUGS (3)
  1. SYMLIN [Suspect]
     Indication: TYPE 2 DIABETES MELLITUS
     Dosage: 240 MCG;TID;SC
     Route: 058
  2. LANTUS [Concomitant]
  3. GLIPIZIDE [Concomitant]

REACTIONS (1)
  - DIVERTICULITIS [None]
